FAERS Safety Report 7460130-7 (Version None)
Quarter: 2011Q2

REPORT INFORMATION
  Report Type: 
  Country: None (occurrence: None)
  Receive Date: 20110505
  Receipt Date: 20110426
  Transmission Date: 20111010
  Serious: Yes (Hospitalization)
  Sender: FDA-Public Use
  Company Number: US-ELI_LILLY_AND_COMPANY-US201104000288

PATIENT
  Sex: Female
  Weight: 75.737 kg

DRUGS (5)
  1. HUMALOG MIX 75/25 [Suspect]
     Dosage: 10 U, OTHER
     Dates: start: 20090710
  2. DIURETICS [Concomitant]
  3. HUMALOG MIX 75/25 [Suspect]
     Dosage: 15 U, EACH MORNING
     Dates: start: 20090710
  4. HUMALOG MIX 75/25 [Suspect]
     Indication: TYPE 1 DIABETES MELLITUS
     Dosage: 15 U, EACH MORNING
     Dates: start: 20090710
  5. HUMALOG MIX 75/25 [Suspect]
     Dosage: 10 U, OTHER
     Dates: start: 20090710

REACTIONS (6)
  - MOBILITY DECREASED [None]
  - HYPOKALAEMIA [None]
  - THYROID DISORDER [None]
  - MEMORY IMPAIRMENT [None]
  - OEDEMA [None]
  - THINKING ABNORMAL [None]
